FAERS Safety Report 6601271-3 (Version None)
Quarter: 2010Q1

REPORT INFORMATION
  Report Type: 
  Country: None (occurrence: None)
  Receive Date: 20100225
  Receipt Date: 20100216
  Transmission Date: 20100710
  Serious: Yes (Other)
  Sender: FDA-Public Use
  Company Number: US-PFIZER INC-2010014050

PATIENT
  Sex: Female
  Weight: 76.657 kg

DRUGS (12)
  1. NORVASC [Suspect]
     Indication: HYPERTENSION
     Dosage: 2.5 MG, AS NEEDED
     Route: 048
     Dates: start: 20090908, end: 20100201
  2. ARISTOCORT [Concomitant]
     Dosage: 0.1%
     Route: 061
     Dates: start: 20100202
  3. OXYGEN [Concomitant]
  4. CELEBREX [Concomitant]
     Dosage: 100 MG, AS NEEDED
     Dates: start: 20100204
  5. AVAPRO [Concomitant]
     Dosage: 75 MG, 2X/DAY
     Route: 048
     Dates: start: 20100204
  6. FUROSEMIDE [Concomitant]
     Dosage: 40 MG, DAILY
     Dates: start: 20100114
  7. PROAIR HFA [Concomitant]
     Dosage: UNK
     Route: 055
     Dates: start: 20091211
  8. ZEBETA [Concomitant]
     Dosage: 5 MG, DAILY
     Dates: start: 20091210
  9. PLAVIX [Concomitant]
     Dosage: 75 MG, DAILY
     Dates: start: 20091210
  10. NITROSTAT [Concomitant]
     Dosage: 0.4 MG
     Route: 048
     Dates: start: 20091210
  11. ASPIRIN [Concomitant]
     Dosage: 81 MG, DAILY
     Dates: start: 20091210
  12. TYLENOL-500 [Concomitant]
     Dosage: 325 MG, AS NEEDED
     Dates: start: 20091210

REACTIONS (1)
  - HALLUCINATION [None]
